FAERS Safety Report 5709279-7 (Version None)
Quarter: 2008Q2

REPORT INFORMATION
  Report Type: 
  Country: None (occurrence: None)
  Receive Date: 20080418
  Receipt Date: 20080407
  Transmission Date: 20081010
  Serious: Yes (Death, Life-Threatening, Hospitalization, Other)
  Sender: FDA-Public Use
  Company Number: AR-NOVOPROD-273409

PATIENT
  Sex: Female
  Weight: 2.85 kg

DRUGS (6)
  1. LEVEMIR [Suspect]
     Indication: DRUG USE FOR UNKNOWN INDICATION
     Dosage: 49 IU, UNK
     Route: 064
     Dates: start: 20060101
  2. INSULIN LISPRO [Concomitant]
     Dosage: 5 U, DAILY
     Route: 064
  3. FOLIC ACID [Concomitant]
     Dosage: 5 MG, DAILY
     Route: 064
  4. ANTIEMETICS AND ANTINAUSEANTS [Concomitant]
     Dosage: 30 MG, DAILY
     Route: 064
     Dates: start: 20070101
  5. PROGESTERONE [Concomitant]
     Dosage: 300 UNK, DAY
     Route: 064
     Dates: start: 20070101, end: 20070101
  6. FERROUS FUMARATE [Concomitant]
     Dosage: 330 MG, DAY
     Route: 064
     Dates: start: 20070101

REACTIONS (6)
  - CARDIO-RESPIRATORY ARREST NEONATAL [None]
  - HYPOGLYCAEMIA NEONATAL [None]
  - METABOLIC ACIDOSIS [None]
  - NEONATAL RESPIRATORY DISTRESS SYNDROME [None]
  - PERSISTENT FOETAL CIRCULATION [None]
  - PREMATURE BABY [None]
